FAERS Safety Report 4353337-9 (Version None)
Quarter: 2004Q2

REPORT INFORMATION
  Report Type: 
  Country: None (occurrence: None)
  Receive Date: 20040429
  Receipt Date: 20040414
  Transmission Date: 20050107
  Serious: Yes (Hospitalization, Other)
  Sender: FDA-Public Use
  Company Number: US072842

PATIENT
  Age: 44 Year
  Sex: Female

DRUGS (2)
  1. ENBREL [Suspect]
     Indication: ANKYLOSING SPONDYLITIS
     Dosage: 25 MG, 2 IN 1 WEEKS, SC
     Route: 058
     Dates: start: 20031001
  2. ANALGESIC LIQ [Concomitant]

REACTIONS (8)
  - ASTHENIA [None]
  - CHOLECYSTITIS [None]
  - CONDITION AGGRAVATED [None]
  - DEHYDRATION [None]
  - HEADACHE [None]
  - HEPATIC LESION [None]
  - SYNCOPE [None]
  - VOMITING [None]
